FAERS Safety Report 5648470-5 (Version None)
Quarter: 2008Q1

REPORT INFORMATION
  Report Type: 
  Country: None (occurrence: None)
  Receive Date: 20080304
  Receipt Date: 20080227
  Transmission Date: 20080703
  Serious: Yes (Death, Other)
  Sender: FDA-Public Use
  Company Number: PHHY2008JP02285

PATIENT
  Age: 56 Year
  Sex: Male

DRUGS (5)
  1. METHOTREXATE [Suspect]
     Indication: BONE MARROW TRANSPLANT
  2. ENDOXAN [Concomitant]
     Indication: BONE MARROW TRANSPLANT
     Dosage: 2000MG/M2
  3. FLUOROURACIL [Concomitant]
     Indication: BONE MARROW TRANSPLANT
     Dosage: 120MG/M2
  4. GRAN [Concomitant]
     Indication: BONE MARROW TRANSPLANT
  5. CYCLOSPORINE [Suspect]
     Indication: BONE MARROW TRANSPLANT
     Route: 065

REACTIONS (5)
  - BLOOD STEM CELL TRANSPLANT FAILURE [None]
  - ENCEPHALOPATHY [None]
  - ENGRAFTMENT SYNDROME [None]
  - GRAFT VERSUS HOST DISEASE [None]
  - HUMAN HERPESVIRUS 6 INFECTION [None]
